FAERS Safety Report 7313339-7 (Version None)
Quarter: 2011Q1

REPORT INFORMATION
  Report Type: 
  Country: None (occurrence: None)
  Receive Date: 20110217
  Receipt Date: 20110217
  Transmission Date: 20110831
  Serious: No
  Sender: FDA-Public Use
  Company Number: None

PATIENT
  Age: 60 Year
  Sex: Female
  Weight: 73.4827 kg

DRUGS (1)
  1. BETASERON [Suspect]
     Indication: MULTIPLE SCLEROSIS
     Dosage: INJECT 0.25MG EVERY OTHER DAY OTHER
     Route: 050
     Dates: start: 20050201, end: 20100210

REACTIONS (4)
  - FEELING ABNORMAL [None]
  - ASTHENIA [None]
  - MULTIPLE SCLEROSIS [None]
  - TRANCE [None]
